FAERS Safety Report 21537689 (Version 2)
Quarter: 2022Q4

REPORT INFORMATION
  Report Type: Spontaneous
  Country: US (occurrence: US)
  Receive Date: 20221101
  Receipt Date: 20221124
  Transmission Date: 20230113
  Serious: No
  Sender: FDA-Public Use
  Company Number: US-SA-SAC20221026001726

PATIENT
  Sex: Female
  Weight: 95.254 kg

DRUGS (10)
  1. DUPIXENT [Suspect]
     Active Substance: DUPILUMAB
     Indication: Nasal polyps
     Dosage: 300 MG, QOW
     Route: 058
     Dates: start: 20211110
  2. VITAMIN D3 [Concomitant]
     Active Substance: CHOLECALCIFEROL
     Dosage: 10 MCG TABLET
  3. METOPROLOL SUCCINATE [Concomitant]
     Active Substance: METOPROLOL SUCCINATE
  4. SEROQUEL [Concomitant]
     Active Substance: QUETIAPINE FUMARATE
     Dosage: 100MG
  5. ZOLOFT [Concomitant]
     Active Substance: SERTRALINE HYDROCHLORIDE
     Dosage: 100MG
  6. HUMULIN R [Concomitant]
     Active Substance: INSULIN HUMAN
  7. ROSUVASTATIN CALCIUM [Concomitant]
     Active Substance: ROSUVASTATIN CALCIUM
  8. LISINOPRIL [Concomitant]
     Active Substance: LISINOPRIL
  9. RISPERDAL [Concomitant]
     Active Substance: RISPERIDONE
     Dosage: 12.5MG/2ML VIAL
  10. ASPIRIN [Concomitant]
     Active Substance: ASPIRIN

REACTIONS (3)
  - Dry eye [Unknown]
  - Hypersensitivity [Unknown]
  - Eye pruritus [Unknown]
